FAERS Safety Report 20627233 (Version 2)
Quarter: 2022Q3

REPORT INFORMATION
  Report Type: Spontaneous
  Country: CA (occurrence: CA)
  Receive Date: 20220323
  Receipt Date: 20220704
  Transmission Date: 20221026
  Serious: Yes (Death, Hospitalization, Other)
  Sender: FDA-Public Use
  Company Number: CA-GLAXOSMITHKLINE-CA2022GSK052069

PATIENT
  Sex: Male

DRUGS (1)
  1. ZANTAC [Suspect]
     Active Substance: RANITIDINE HYDROCHLORIDE
     Indication: Gastrooesophageal reflux disease
     Dosage: UNK, QD
     Route: 065
     Dates: start: 2010

REACTIONS (12)
  - Oesophageal adenocarcinoma [Fatal]
  - Metastatic gastric cancer [Unknown]
  - Oesophageal cancer metastatic [Unknown]
  - Gastrooesophageal cancer [Unknown]
  - Metastases to bone [Unknown]
  - Metastases to pelvis [Unknown]
  - Metastases to peritoneum [Unknown]
  - Metastases to liver [Unknown]
  - Oesophageal mass [Unknown]
  - Helicobacter gastritis [Unknown]
  - Oesophageal neoplasm [Unknown]
  - Stomach mass [Unknown]
